FAERS Safety Report 5609187-6 (Version None)
Quarter: 2008Q1

REPORT INFORMATION
  Report Type: 
  Country: None (occurrence: None)
  Receive Date: 20080131
  Receipt Date: 20080121
  Transmission Date: 20080703
  Serious: Yes (Hospitalization)
  Sender: FDA-Public Use
  Company Number: US-ABBOTT-08P-163-0434553-00

PATIENT
  Sex: Female
  Weight: 61.29 kg

DRUGS (4)
  1. SYNTHROID [Suspect]
     Indication: HYPOTHYROIDISM
     Route: 048
     Dates: end: 20071107
  2. SYNTHROID [Suspect]
     Indication: AUTOIMMUNE THYROIDITIS
     Dates: start: 20080121
  3. SYNTHROID [Suspect]
     Route: 048
     Dates: start: 19850101, end: 20071107
  4. LIOTHYRONINE SODIUM [Concomitant]
     Indication: NEOPLASM MALIGNANT
     Route: 048
     Dates: start: 20080101, end: 20080101

REACTIONS (1)
  - THYROID CANCER [None]
